FAERS Safety Report 11797675 (Version 3)
Quarter: 2016Q1

REPORT INFORMATION
  Report Type: Spontaneous
  Country: JP (occurrence: JP)
  Receive Date: 20151203
  Receipt Date: 20160106
  Transmission Date: 20160525
  Serious: Yes (Hospitalization, Other)
  Sender: FDA-Public Use
  Company Number: JP-BRISTOL-MYERS SQUIBB COMPANY-BMS-2015-080006

PATIENT
  Age: 79 Year
  Sex: Male
  Weight: 39 kg

DRUGS (4)
  1. ERBITUX [Suspect]
     Active Substance: CETUXIMAB
     Dosage: 360 MG, QWK
     Route: 041
     Dates: start: 20150813, end: 20150924
  2. ERBITUX [Suspect]
     Active Substance: CETUXIMAB
     Indication: OROPHARYNGEAL CANCER
     Dosage: 250 MG/ML, QWK
     Route: 041
     Dates: start: 20150806, end: 20151002
  3. HIRUDOID                           /00723701/ [Concomitant]
     Active Substance: PENTOSAN POLYSULFATE SODIUM
     Indication: PRODUCT USED FOR UNKNOWN INDICATION
     Dosage: UNK
     Route: 061
     Dates: start: 20150805
  4. MINOMYCIN [Concomitant]
     Active Substance: MINOCYCLINE HYDROCHLORIDE
     Indication: PRODUCT USED FOR UNKNOWN INDICATION
     Dosage: 100 MG, BID
     Route: 048
     Dates: start: 20150805

REACTIONS (4)
  - Interstitial lung disease [Recovering/Resolving]
  - Mucosal inflammation [Recovering/Resolving]
  - Pneumonia aspiration [Recovered/Resolved]
  - Hypernatraemia [Unknown]

NARRATIVE: CASE EVENT DATE: 20151004
